FAERS Safety Report 4799019-0 (Version None)
Quarter: 2005Q4

REPORT INFORMATION
  Report Type: 
  Country: None (occurrence: None)
  Receive Date: 20051013
  Receipt Date: 20051004
  Transmission Date: 20060501
  Serious: Yes (Hospitalization)
  Sender: FDA-Public Use
  Company Number: 2005-BP-13615EX

PATIENT
  Age: 56 Year
  Sex: Male

DRUGS (9)
  1. PREDNISONE TAB [Suspect]
     Indication: PROSTATE CANCER
     Dosage: 10 MG DAILY, PO
     Route: 048
     Dates: start: 20050208
  2. MITOXANTRONE [Suspect]
     Indication: PROSTATE CANCER
     Dosage: 12 MG/M2 (22 MG) EVERY 3 WEEKS, IV
     Route: 042
     Dates: start: 20050208
  3. HYDROMORPHONE HCL [Concomitant]
  4. DOCUSATE SODIUM (DOCUSATE SODIUM) [Concomitant]
  5. SENNA FRUIT (SENNA ALEXANDRIA FRUIT) [Concomitant]
  6. MAGNESIUM CITRATE (MAGNESIUM CITRATE) [Concomitant]
  7. RANITIDINE [Concomitant]
  8. HEPARIN [Concomitant]
  9. GOSERELIN (GOSERELIN) [Concomitant]

REACTIONS (8)
  - HAEMOGLOBIN DECREASED [None]
  - LOBAR PNEUMONIA [None]
  - LUNG INFECTION [None]
  - LYMPHANGIOSIS CARCINOMATOSA [None]
  - NEUTROPENIA [None]
  - TINEA CRURIS [None]
  - URINARY TRACT INFECTION PSEUDOMONAL [None]
  - URINARY TRACT INFECTION STAPHYLOCOCCAL [None]
